FAERS Safety Report 10592629 (Version 1)
Quarter: 2014Q4

REPORT INFORMATION
  Report Type: Spontaneous
  Country: AT (occurrence: AT)
  Receive Date: 20141119
  Receipt Date: 20141119
  Transmission Date: 20150529
  Serious: Yes (Death, Other)
  Sender: FDA-Public Use
  Company Number: AT-BAYER-2014-166227

PATIENT
  Age: 55 Year
  Sex: Male

DRUGS (1)
  1. STIVARGA [Suspect]
     Active Substance: REGORAFENIB
     Indication: RECTAL CANCER
     Dosage: UNK
     Dates: start: 201309, end: 201405

REACTIONS (5)
  - Pneumonia klebsiella [None]
  - Urinary tract infection [None]
  - Death [Fatal]
  - Acute kidney injury [None]
  - Pseudomonas infection [None]

NARRATIVE: CASE EVENT DATE: 201310
